FAERS Safety Report 9212471 (Version 2)
Quarter: 2013Q2

REPORT INFORMATION
  Report Type: Spontaneous
  Country: US (occurrence: US)
  Receive Date: 20130401
  Receipt Date: 20130415
  Transmission Date: 20140414
  Serious: Yes (Other)
  Sender: FDA-Public Use
  Company Number: CHPA2013US005323

PATIENT
  Age: 53 Year
  Sex: Female

DRUGS (2)
  1. EXCEDRIN EXTRA STRENGTH [Suspect]
     Indication: FRACTURE PAIN
     Dosage: 1 TO 2 UNK, PRN
     Route: 048
  2. EXCEDRIN EXTRA STRENGTH [Suspect]
     Indication: HANGOVER

REACTIONS (4)
  - Femur fracture [Recovering/Resolving]
  - Fracture pain [Recovering/Resolving]
  - Off label use [Unknown]
  - Underdose [Unknown]
